FAERS Safety Report 23906713 (Version 2)
Quarter: 2024Q2

REPORT INFORMATION
  Report Type: Report from Study
  Country: IN (occurrence: IN)
  Receive Date: 20240528
  Receipt Date: 20240607
  Transmission Date: 20240716
  Serious: Yes (Hospitalization)
  Sender: FDA-Public Use
  Company Number: IN-002147023-NVSC2024IN109046

PATIENT
  Sex: Male
  Weight: 9 kg

DRUGS (2)
  1. ZOLGENSMA [Suspect]
     Active Substance: ONASEMNOGENE ABEPARVOVEC-XIOI
     Indication: Spinal muscular atrophy
     Dosage: 1.1X10E14 VG/KG SLOWLY OVER 60 MIN
     Route: 042
     Dates: start: 20240514, end: 20240514
  2. PREDNISOLONE [Concomitant]
     Active Substance: PREDNISOLONE
     Indication: Product used for unknown indication
     Dosage: 1 MG/KG BODY WEIGHT, QD
     Route: 048
     Dates: start: 20240513

REACTIONS (2)
  - Liver function test increased [Recovering/Resolving]
  - Vomiting [Recovering/Resolving]
